FAERS Safety Report 5271283-3 (Version None)
Quarter: 2007Q1

REPORT INFORMATION
  Report Type: 
  Country: None (occurrence: None)
  Receive Date: 20070321
  Receipt Date: 20070309
  Transmission Date: 20070707
  Serious: Yes (Life-Threatening, Hospitalization)
  Sender: FDA-Public Use
  Company Number: HQWYE462213MAR07

PATIENT
  Age: 38 Year
  Sex: Female

DRUGS (2)
  1. EFFEXOR XR [Suspect]
     Dosage: 7.5 G OVERDOSE AMOUNT
     Route: 048
  2. OXAZEPAM [Suspect]
     Dosage: OVERDOSE AMOUNT UNKNOWN
     Route: 048

REACTIONS (6)
  - AGGRESSION [None]
  - CARDIAC ARREST [None]
  - INTENTIONAL OVERDOSE [None]
  - LOSS OF CONSCIOUSNESS [None]
  - VENTRICULAR FIBRILLATION [None]
  - VENTRICULAR TACHYCARDIA [None]
